FAERS Safety Report 12297596 (Version 2)
Quarter: 2016Q2

REPORT INFORMATION
  Report Type: Report from Study
  Country: VN (occurrence: VN)
  Receive Date: 20160422
  Receipt Date: 20160428
  Transmission Date: 20160815
  Serious: Yes (Hospitalization)
  Sender: FDA-Public Use
  Company Number: VN-ASTRAZENECA-2016SE40888

PATIENT
  Age: 20611 Day
  Sex: Male

DRUGS (19)
  1. AZD9941 CODE NOT BROKEN [Suspect]
     Active Substance: ROXADUSTAT
     Indication: NEPHROGENIC ANAEMIA
     Route: 048
     Dates: start: 20160108, end: 20160120
  2. FERLATUM [Concomitant]
     Indication: IRON DEFICIENCY
     Route: 048
     Dates: start: 20151118
  3. ADALAT CC [Concomitant]
     Active Substance: NIFEDIPINE
     Indication: HYPERTENSION
     Route: 048
     Dates: start: 20151125
  4. MOXIFLOXACIN. [Suspect]
     Active Substance: MOXIFLOXACIN
     Route: 065
  5. PULMICORT TURBUHALER [Suspect]
     Active Substance: BUDESONIDE
     Route: 055
  6. FUROSEMIDE. [Suspect]
     Active Substance: FUROSEMIDE
     Indication: CHRONIC KIDNEY DISEASE
     Route: 048
     Dates: start: 20160105, end: 20160122
  7. VENTONIN [Suspect]
     Active Substance: ALBUTEROL
     Route: 065
  8. AZD9941 CODE NOT BROKEN [Suspect]
     Active Substance: ROXADUSTAT
     Indication: NEPHROGENIC ANAEMIA
     Route: 048
     Dates: start: 20160304, end: 20160316
  9. FUROSEMIDE. [Suspect]
     Active Substance: FUROSEMIDE
     Indication: CHRONIC KIDNEY DISEASE
     Route: 048
     Dates: start: 20151118, end: 20160104
  10. ATTAPULGITE [Concomitant]
     Active Substance: ATTAPULGITE
     Indication: ABDOMINAL PAIN UPPER
     Route: 048
     Dates: start: 20151211
  11. OMEPRAZOL [Concomitant]
     Active Substance: OMEPRAZOLE
     Indication: ABDOMINAL PAIN UPPER
     Route: 048
     Dates: start: 20151211
  12. AZD9941 CODE NOT BROKEN [Suspect]
     Active Substance: ROXADUSTAT
     Indication: NEPHROGENIC ANAEMIA
     Route: 048
     Dates: start: 20160122, end: 20160203
  13. AZD9941 CODE NOT BROKEN [Suspect]
     Active Substance: ROXADUSTAT
     Indication: NEPHROGENIC ANAEMIA
     Route: 048
     Dates: start: 20160205, end: 20160217
  14. KETOSTERIL [Concomitant]
     Active Substance: AMINO ACIDS
     Indication: CHRONIC KIDNEY DISEASE
     Route: 048
     Dates: start: 20151118
  15. AZD9941 CODE NOT BROKEN [Suspect]
     Active Substance: ROXADUSTAT
     Indication: NEPHROGENIC ANAEMIA
     Route: 048
     Dates: start: 20151211, end: 20151218
  16. AZD9941 CODE NOT BROKEN [Suspect]
     Active Substance: ROXADUSTAT
     Indication: NEPHROGENIC ANAEMIA
     Route: 048
     Dates: start: 20151225, end: 20160101
  17. ENTRAVIGA [Suspect]
     Active Substance: ARGININE HYDROCHLORIDE
     Route: 065
  18. AZD9941 CODE NOT BROKEN [Suspect]
     Active Substance: ROXADUSTAT
     Indication: NEPHROGENIC ANAEMIA
     Route: 048
     Dates: start: 20160219, end: 20160302
  19. PARACETAMOL [Suspect]
     Active Substance: ACETAMINOPHEN
     Route: 065

REACTIONS (1)
  - End stage renal disease [Recovering/Resolving]

NARRATIVE: CASE EVENT DATE: 20160321
